FAERS Safety Report 23082198 (Version 6)
Quarter: 2024Q4

REPORT INFORMATION
  Report Type: Spontaneous
  Country: US (occurrence: US)
  Receive Date: 20231019
  Receipt Date: 20241218
  Transmission Date: 20250114
  Serious: No
  Sender: NOVARTIS
  Company Number: US-002147023-NVSC2023US221449

PATIENT
  Sex: Female

DRUGS (2)
  1. MEKINIST [Suspect]
     Active Substance: TRAMETINIB DIMETHYL SULFOXIDE
     Indication: Ovarian cancer
     Dosage: 2 MG, QD
     Route: 048
     Dates: start: 202309
  2. MEKINIST [Suspect]
     Active Substance: TRAMETINIB DIMETHYL SULFOXIDE
     Dosage: 1.5 MG, QD (0.5MG)
     Route: 048
     Dates: start: 202309

REACTIONS (7)
  - Diarrhoea [Unknown]
  - Rash [Unknown]
  - Dry mouth [Unknown]
  - Visual impairment [Unknown]
  - Product use in unapproved indication [Unknown]
  - Dry skin [Unknown]
  - Acne [Unknown]
